FAERS Safety Report 9186673 (Version 5)
Quarter: 2021Q1

REPORT INFORMATION
  Report Type: Report from Study
  Country: AR (occurrence: AR)
  Receive Date: 20130325
  Receipt Date: 20210317
  Transmission Date: 20210420
  Serious: Yes (Death, Hospitalization, Other)
  Sender: FDA-Public Use
  Company Number: AR-SHIRE-ALL1-2013-01799

PATIENT
  Age: 16 Year
  Sex: Male
  Weight: 35.5 kg

DRUGS (12)
  1. IDURSULFASE [Suspect]
     Active Substance: IDURSULFASE
     Indication: MUCOPOLYSACCHARIDOSIS II
     Dosage: 0.5 MG/KG, 1X/WEEK
     Route: 041
     Dates: start: 20070727, end: 201006
  2. DIPHENHYDRAMINE. [Concomitant]
     Active Substance: DIPHENHYDRAMINE
     Indication: PREMEDICATION
     Dosage: 5 MG/KG, 1X/WEEK
     Route: 048
     Dates: start: 20070726
  3. KARIDIUM [Concomitant]
     Indication: NERVOUS SYSTEM DISORDER
     Dosage: 10 MG, 2X/DAY:BID
     Route: 065
     Dates: start: 20081105
  4. DIPHENHYDRAMINE. [Concomitant]
     Active Substance: DIPHENHYDRAMINE
     Dosage: 11 MG, 3X/DAY:TID
     Route: 048
     Dates: start: 20070802
  5. CLARITHROMYCIN. [Concomitant]
     Active Substance: CLARITHROMYCIN
     Indication: COUGH
     Dosage: 270 MG, 2X/DAY:BID
     Route: 048
     Dates: start: 20071019
  6. BENADRYL [Concomitant]
     Active Substance: DIPHENHYDRAMINE HYDROCHLORIDE
     Indication: PREMEDICATION
     Dosage: 5 ML, OTHER (1 HOUR PRE MEDICATION)
     Route: 042
     Dates: start: 20070726
  7. DEXAMETHASONE. [Concomitant]
     Active Substance: DEXAMETHASONE
     Indication: PREMEDICATION
     Dosage: 6.6 MG, 3X/DAY:TID
     Route: 048
     Dates: start: 20070802
  8. PARACETAMOL [Concomitant]
     Active Substance: ACETAMINOPHEN
     Indication: PREMEDICATION
     Dosage: 5 ML, OTHER (1 HOUR PRE MEDICATION)
     Route: 042
     Dates: start: 20070726
  9. VALPROIC ACID. [Concomitant]
     Active Substance: VALPROIC ACID
     Indication: NERVOUS SYSTEM DISORDER
     Dosage: 35 MG, 2X/DAY:BID
     Route: 048
     Dates: start: 20110322
  10. DIAZEPAN [Concomitant]
     Active Substance: DIAZEPAM
     Indication: PRODUCT USED FOR UNKNOWN INDICATION
     Dosage: 5 MG, UNKNOWN
     Route: 042
     Dates: start: 20081105
  11. ADRENALINE [Concomitant]
     Active Substance: EPINEPHRINE
     Indication: PREMEDICATION
     Dosage: 3 ML, UNKNOWN
     Route: 042
     Dates: start: 20070802
  12. CEFUROXIMA [Concomitant]
     Indication: PNEUMONIA
     Dosage: 150 MG, 2X/DAY:BID
     Route: 042
     Dates: start: 20110413

REACTIONS (5)
  - Pyrexia [Recovered/Resolved]
  - Vomiting [Recovered/Resolved]
  - Respiratory failure [Fatal]
  - Pneumonia [Not Recovered/Not Resolved]
  - Seizure [Recovered/Resolved]

NARRATIVE: CASE EVENT DATE: 20110928
